FAERS Safety Report 9937895 (Version 1)
Quarter: 2014Q1

REPORT INFORMATION
  Report Type: Spontaneous
  Country: US (occurrence: US)
  Receive Date: 20140303
  Receipt Date: 20140303
  Transmission Date: 20141002
  Serious: No
  Sender: FDA-Public Use
  Company Number: US-BIOGENIDEC-2014BI016823

PATIENT
  Age: 68 Year
  Sex: Female

DRUGS (14)
  1. TECFIDERA [Suspect]
     Indication: MULTIPLE SCLEROSIS
     Route: 048
     Dates: start: 201309
  2. AMMONIUM LACTATE [Concomitant]
  3. BACTRIM [Concomitant]
  4. PREDNISONE [Concomitant]
  5. AUGMENTIN [Concomitant]
  6. AMBIEN [Concomitant]
  7. LIPITOR [Concomitant]
  8. CLONAZEPAM [Concomitant]
  9. GABAPENTIN [Concomitant]
  10. DIAZEPAM [Concomitant]
  11. LEXAPRO [Concomitant]
  12. PROVIGIL [Concomitant]
  13. OMEPRAZOLE [Concomitant]
  14. PEPTO-BISMOL [Concomitant]

REACTIONS (1)
  - Dysgeusia [Unknown]
